FAERS Safety Report 9650752 (Version 1)
Quarter: 2013Q4

REPORT INFORMATION
  Report Type: Spontaneous
  Country: US (occurrence: US)
  Receive Date: 20131029
  Receipt Date: 20131029
  Transmission Date: 20140711
  Serious: Yes (Other)
  Sender: FDA-Public Use
  Company Number: US-JNJFOC-20131009342

PATIENT
  Sex: 0

DRUGS (13)
  1. DIPHENHYDRAMINE [Suspect]
     Route: 065
  2. DIPHENHYDRAMINE [Suspect]
     Indication: SEDATION
     Route: 065
  3. PROMETHAZINE [Suspect]
     Indication: SEDATION
     Route: 065
  4. LORAZEPAM [Suspect]
     Indication: SEDATION
     Route: 065
  5. OXAZEPAM [Suspect]
     Indication: SEDATION
     Route: 065
  6. ALPRAZOLAM [Suspect]
     Indication: SEDATION
     Route: 065
  7. TEMAZEPAM [Suspect]
     Indication: SEDATION
     Route: 065
  8. TRIAZOLAM [Suspect]
     Indication: SEDATION
     Route: 065
  9. CHLORDIAZEPOXIDE [Suspect]
     Indication: SEDATION
     Route: 065
  10. DIAZEPAM [Suspect]
     Indication: SEDATION
     Route: 065
  11. QUAZEPAM [Suspect]
     Indication: SEDATION
     Route: 065
  12. HALAZEPAM [Suspect]
     Indication: SEDATION
     Route: 065
  13. CLORAZEPATE [Suspect]
     Indication: SEDATION
     Route: 065

REACTIONS (1)
  - Delirium [Unknown]
